FAERS Safety Report 4701213-1 (Version None)
Quarter: 2005Q2

REPORT INFORMATION
  Report Type: 
  Country: None (occurrence: None)
  Receive Date: 20050628
  Receipt Date: 20050617
  Transmission Date: 20051028
  Serious: Yes (Other)
  Sender: FDA-Public Use
  Company Number: US-NOVOPROD-244883

PATIENT
  Age: 90 Year
  Sex: Female
  Weight: 59 kg

DRUGS (10)
  1. NOVOLIN 70/30 INNOLET [Suspect]
     Indication: INSULIN-REQUIRING TYPE II DIABETES MELLITUS
     Dosage: 15 IU, BID
     Route: 058
     Dates: start: 20050101
  2. ALPRAZOLAM [Concomitant]
     Indication: ANXIETY
  3. PEPCID [Concomitant]
     Indication: GASTRIC ULCER
  4. PAXIL [Concomitant]
     Indication: DEPRESSION
  5. COZAAR [Concomitant]
     Indication: HYPERTENSION
     Dates: start: 20050501
  6. TRIAMTERENE [Concomitant]
     Indication: HYPERTENSION
     Dates: start: 20050501
  7. LOPRESSOR [Concomitant]
     Indication: HYPERTENSION
     Dates: start: 20050501
  8. METFORMIN HCL [Concomitant]
     Indication: INSULIN-REQUIRING TYPE II DIABETES MELLITUS
  9. MURO 128 [Concomitant]
     Indication: GLAUCOMA
  10. LEVOBUNOLOL [Concomitant]
     Indication: GLAUCOMA
     Dosage: UNK, UNK

REACTIONS (4)
  - CHEST PAIN [None]
  - CHILLS [None]
  - DIZZINESS [None]
  - HYPERHIDROSIS [None]
